FAERS Safety Report 16587429 (Version 1)
Quarter: 2019Q3

REPORT INFORMATION
  Report Type: Spontaneous
  Country: BE (occurrence: BE)
  Receive Date: 20190717
  Receipt Date: 20190717
  Transmission Date: 20191004
  Serious: Yes (Death)
  Sender: FDA-Public Use
  Company Number: BE-BAUSCH-BL-2019-020124

PATIENT
  Age: 53 Year
  Sex: Male

DRUGS (1)
  1. KYNTHEUM [Suspect]
     Active Substance: BRODALUMAB
     Indication: PSORIASIS
     Dosage: FIRST INJECTION ON 26/JUN/2019 OR 27/JUN/2019, SECOND INJECTION OF KYNTHEUM ON 03 OR 04/JUL/2019
     Route: 058
     Dates: start: 201906

REACTIONS (1)
  - Death [Fatal]

NARRATIVE: CASE EVENT DATE: 201907
